FAERS Safety Report 8479541-6 (Version None)
Quarter: 2012Q2

REPORT INFORMATION
  Report Type: 
  Country: None (occurrence: None)
  Receive Date: 20120629
  Receipt Date: 20120618
  Transmission Date: 20120825
  Serious: Yes (Other)
  Sender: FDA-Public Use
  Company Number: JP-VERTEX PHARMACEUTICALS INC.-AE-2012-007250

PATIENT
  Age: 59 Year
  Sex: Male

DRUGS (5)
  1. LOXOPROFEN [Concomitant]
     Route: 048
     Dates: start: 20120411
  2. TELAVIC (TELAPREVIR) [Suspect]
     Indication: HEPATITIS C
     Route: 048
     Dates: start: 20120411, end: 20120509
  3. URSO 250 [Concomitant]
     Route: 048
     Dates: end: 20120425
  4. RIBAVIRIN [Concomitant]
     Indication: HEPATITIS C
     Route: 048
     Dates: start: 20120411, end: 20120509
  5. PEGINTERFERON ALFA-2B [Concomitant]
     Indication: HEPATITIS C
     Route: 058
     Dates: start: 20120411, end: 20120509

REACTIONS (2)
  - RASH [None]
  - PRURITUS [None]
